FAERS Safety Report 9975713 (Version 2)
Quarter: 2014Q2

REPORT INFORMATION
  Report Type: Spontaneous
  Country: US (occurrence: US)
  Receive Date: 20140306
  Receipt Date: 20140417
  Transmission Date: 20141212
  Serious: Yes (Other)
  Sender: FDA-Public Use
  Company Number: US-UCBSA-113624

PATIENT
  Age: 69 Year
  Sex: Female
  Weight: 65.7 kg

DRUGS (21)
  1. CIMZIA [Suspect]
     Indication: PSORIATIC ARTHROPATHY
     Dates: start: 20140211, end: 20140211
  2. CIMZIA [Suspect]
     Indication: RHEUMATOID ARTHRITIS
     Dates: start: 20140211, end: 20140211
  3. CIMZIA [Suspect]
     Indication: OSTEOARTHRITIS
     Dates: start: 20140211, end: 20140211
  4. METHOTREXATE [Concomitant]
     Indication: PSORIATIC ARTHROPATHY
     Dosage: 2.5MG ONCE A WEEK EIGHT PILLS
     Route: 048
  5. NEXIUM [Concomitant]
     Indication: GASTROOESOPHAGEAL REFLUX DISEASE
     Dosage: AT BEDTIME
     Route: 048
  6. FOLIC ACID [Concomitant]
     Indication: VITAMIN SUPPLEMENTATION
     Route: 048
  7. LORATADINE [Concomitant]
     Indication: NUTRITIONAL SUPPLEMENTATION
     Route: 048
  8. VITAMIN D3 [Concomitant]
     Indication: VITAMIN SUPPLEMENTATION
     Dosage: 1000 UNITS DAILY
     Route: 048
  9. PCOLRITE NA [Concomitant]
     Dosage: TWO A DAY AT NIGHT
     Route: 048
  10. COMPAZINE [Concomitant]
     Indication: ABDOMINAL DISCOMFORT
     Dosage: EVERY 8 HOURS AS REQUIRED
     Route: 048
  11. ANTEVERT [Concomitant]
     Indication: VERTIGO
  12. FLUTICASONE PROPIONATE [Concomitant]
     Indication: SINUSITIS
     Dosage: 2 SPRAYS IN EACH NOSTRIL ONCE A DAY
     Route: 045
  13. LISINOPRIL [Concomitant]
     Indication: BLOOD PRESSURE
     Dosage: 10MG: TAKES HALF TABLET ONCE DAILY
     Route: 048
  14. FERROUS SULPHATE [Concomitant]
     Indication: NUTRITIONAL SUPPLEMENTATION
     Dosage: 325MG TAKES TWO TABLET ONCE DAILY
     Route: 048
  15. LOVASTATIN [Concomitant]
     Indication: BLOOD CHOLESTEROL INCREASED
     Dosage: AT BEDTIME
     Route: 048
  16. ALIGN [Concomitant]
     Indication: PROBIOTIC THERAPY
     Dosage: AT BEDTIME
     Route: 048
  17. FOSAMAX [Concomitant]
     Indication: OSTEOPOROSIS
     Route: 048
  18. XANAX [Concomitant]
     Indication: ANXIETY
     Dosage: 0.25MG HALF TABLET DAILY AT BEDTIME
     Route: 048
  19. MORPHINE SULPHATE ER [Concomitant]
     Indication: PAIN
     Route: 048
  20. MORPHINE SULPHATE IR [Concomitant]
     Indication: PAIN
     Route: 048
  21. MAX-FREEZE [Concomitant]
     Indication: ARTHRALGIA

REACTIONS (7)
  - Malaise [Recovered/Resolved]
  - Nausea [Recovered/Resolved]
  - Dry throat [Recovered/Resolved]
  - Abdominal discomfort [Recovered/Resolved]
  - Adverse drug reaction [Unknown]
  - Pharyngeal oedema [Recovered/Resolved]
  - Drug hypersensitivity [Unknown]
